FAERS Safety Report 6059448-4 (Version None)
Quarter: 2009Q1

REPORT INFORMATION
  Report Type: 
  Country: None (occurrence: None)
  Receive Date: 20090130
  Receipt Date: 20090119
  Transmission Date: 20090719
  Serious: Yes (Other)
  Sender: FDA-Public Use
  Company Number: PHEH2007US14568

PATIENT
  Sex: Female
  Weight: 56.689 kg

DRUGS (22)
  1. ZOMETA [Suspect]
     Indication: MULTIPLE MYELOMA
  2. FOSAMAX [Suspect]
  3. WELLBUTRIN [Concomitant]
     Dosage: 200 MG, BID
  4. PAXIL [Concomitant]
  5. ZOCOR [Concomitant]
     Dosage: 80 MG, QD
     Dates: start: 20030101
  6. PROPULSID [Concomitant]
     Dosage: 40 MG, BID
  7. CELEXA [Concomitant]
  8. ESTRATEST [Concomitant]
     Dosage: 1.25/2.5 QAM
  9. COREG [Concomitant]
     Dosage: 6.25 MG, QAM
  10. COLACE [Concomitant]
     Dosage: UNK
  11. NEXIUM [Concomitant]
     Dosage: 40 MG, QAM
  12. MOBIC [Concomitant]
     Dosage: 15 MG, QD
  13. SKELAXIN [Concomitant]
     Dosage: 800 MG, QID
  14. PROMETRIUM [Concomitant]
     Dosage: 100 MG, UNK
  15. EFFEXOR [Concomitant]
     Dosage: 225 MG, QHS
  16. TRAMADOL HCL [Concomitant]
     Dosage: 100 MG, QAM+QPM
  17. LUNESTA [Concomitant]
     Dosage: 3 MG, BEDTIME
  18. ATIVAN [Concomitant]
     Dosage: 1 MG, PRN Q12H
  19. LAXATIVES [Concomitant]
     Dosage: UNK
  20. AMITIZA [Concomitant]
     Dosage: 24 UG, BID
  21. LIPITOR [Concomitant]
     Dosage: UNK
     Dates: start: 20030101
  22. HYTRIN [Concomitant]
     Dosage: 5 MG, UNK

REACTIONS (49)
  - ANGIOPATHY [None]
  - ANHEDONIA [None]
  - ANXIETY [None]
  - ARTHRITIS [None]
  - BACK PAIN [None]
  - BACTERAEMIA [None]
  - BLOOD CHOLESTEROL INCREASED [None]
  - BONE DISORDER [None]
  - BONE EROSION [None]
  - BONE FRAGMENTATION [None]
  - CARDIAC FAILURE CONGESTIVE [None]
  - DEFORMITY [None]
  - DERMATITIS [None]
  - ECZEMA [None]
  - ECZEMA ASTEATOTIC [None]
  - EMOTIONAL DISTRESS [None]
  - ENDODONTIC PROCEDURE [None]
  - EXCESSIVE GRANULATION TISSUE [None]
  - FIBROUS HISTIOCYTOMA [None]
  - GASTROOESOPHAGEAL REFLUX DISEASE [None]
  - HYPERKERATOSIS [None]
  - HYPERTENSION [None]
  - ICHTHYOSIS [None]
  - JAW DISORDER [None]
  - JAW OPERATION [None]
  - LOOSE TOOTH [None]
  - MITRAL VALVE PROLAPSE [None]
  - MULTIPLE MYELOMA [None]
  - NECK PAIN [None]
  - ORAL CAVITY FISTULA [None]
  - ORAL MUCOSA ATROPHY [None]
  - OSTEONECROSIS [None]
  - PAIN [None]
  - PAIN IN JAW [None]
  - PARAESTHESIA ORAL [None]
  - POSTOPERATIVE WOUND COMPLICATION [None]
  - PRURITUS [None]
  - PURULENT DISCHARGE [None]
  - RESORPTION BONE INCREASED [None]
  - SKIN DISORDER [None]
  - SKIN NEOPLASM EXCISION [None]
  - SLEEP APNOEA SYNDROME [None]
  - STEM CELL TRANSPLANT [None]
  - SWELLING [None]
  - TOOTH DISORDER [None]
  - TOOTH FRACTURE [None]
  - TOOTH INFECTION [None]
  - TOOTH LOSS [None]
  - UTERINE LEIOMYOMA [None]
